FAERS Safety Report 5924844-X (Version None)
Quarter: 2008Q4

REPORT INFORMATION
  Report Type: 
  Country: None (occurrence: None)
  Receive Date: 20081020
  Receipt Date: 20081020
  Transmission Date: 20090506
  Serious: Yes (Life-Threatening)
  Sender: FDA-Public Use
  Company Number: None

PATIENT
  Age: 35 Year
  Sex: Female
  Weight: 72.5755 kg

DRUGS (2)
  1. PHENERGAN HCL [Suspect]
     Indication: NAUSEA
     Dosage: IV
     Route: 042
     Dates: start: 20081018, end: 20081018
  2. PHENERGAN HCL [Suspect]
     Indication: VOMITING
     Dosage: IV
     Route: 042
     Dates: start: 20081018, end: 20081018

REACTIONS (7)
  - ANXIETY [None]
  - COMMUNICATION DISORDER [None]
  - DISTURBANCE IN ATTENTION [None]
  - DYSKINESIA [None]
  - DYSPNOEA [None]
  - FEELING ABNORMAL [None]
  - HEART RATE INCREASED [None]
